FAERS Safety Report 19223185 (Version 1)
Quarter: 2021Q2

REPORT INFORMATION
  Report Type: Spontaneous
  Country: US (occurrence: US)
  Receive Date: 20210505
  Receipt Date: 20210505
  Transmission Date: 20210717
  Serious: No
  Sender: FDA-Public Use
  Company Number: US-ROCHE-2727101

PATIENT
  Sex: Male

DRUGS (15)
  1. VENTOLIN HFA [Concomitant]
     Active Substance: ALBUTEROL SULFATE
     Dosage: AER 180 (90
  2. LIDOCAINE. [Concomitant]
     Active Substance: LIDOCAINE
     Dosage: SOLUTION 2 %
     Route: 042
  3. BENZONATATE. [Concomitant]
     Active Substance: BENZONATATE
  4. ATORVASTATIN [Concomitant]
     Active Substance: ATORVASTATIN
  5. ESBRIET [Suspect]
     Active Substance: PIRFENIDONE
     Indication: IDIOPATHIC PULMONARY FIBROSIS
     Dosage: 1 TABLET (801 MG) 3 TIMES A DAY WITH MEAL
     Route: 048
  6. LANSOPRAZOLE. [Concomitant]
     Active Substance: LANSOPRAZOLE
  7. NITROGLYCERIN. [Concomitant]
     Active Substance: NITROGLYCERIN
     Route: 058
  8. ISOSORBIDE. [Concomitant]
     Active Substance: ISOSORBIDE
  9. FENOFIBRATE. [Concomitant]
     Active Substance: FENOFIBRATE
  10. ATENOLOL. [Concomitant]
     Active Substance: ATENOLOL
  11. HYDROXYZINE [Concomitant]
     Active Substance: HYDROXYZINE HYDROCHLORIDE
     Dosage: SYR 10MG/5ML
  12. FUROSEMIDE. [Concomitant]
     Active Substance: FUROSEMIDE
  13. SERTRALINE HYDROCHLORIDE. [Concomitant]
     Active Substance: SERTRALINE HYDROCHLORIDE
  14. RANEXA [Concomitant]
     Active Substance: RANOLAZINE
  15. CLOPIDOGREL [Concomitant]
     Active Substance: CLOPIDOGREL BISULFATE

REACTIONS (2)
  - Product dose omission in error [Unknown]
  - No adverse event [Unknown]
